FAERS Safety Report 7674474-7 (Version None)
Quarter: 2011Q3

REPORT INFORMATION
  Report Type: 
  Country: None (occurrence: None)
  Receive Date: 20110808
  Receipt Date: 20110722
  Transmission Date: 20111222
  Serious: Yes (Other)
  Sender: FDA-Public Use
  Company Number: USA/USA/11/0018661

PATIENT
  Sex: Female

DRUGS (1)
  1. RANITIDINE [Suspect]
     Indication: PRODUCT USED FOR UNKNOWN INDICATION

REACTIONS (2)
  - LOSS OF EMPLOYMENT [None]
  - DRUG SCREEN FALSE POSITIVE [None]
